FAERS Safety Report 24214445 (Version 1)
Quarter: 2024Q3

REPORT INFORMATION
  Report Type: Report from Study
  Country: CA (occurrence: CA)
  Receive Date: 20240815
  Receipt Date: 20240815
  Transmission Date: 20241017
  Serious: Yes (Other)
  Sender: HLS THERAPEUTICS
  Company Number: CA-HLS-202401919

PATIENT
  Sex: Female

DRUGS (7)
  1. CLOZARIL [Suspect]
     Active Substance: CLOZAPINE
     Indication: Product used for unknown indication
     Route: 048
     Dates: start: 20240704
  2. BISOPROLOL [Concomitant]
     Active Substance: BISOPROLOL\BISOPROLOL FUMARATE
     Indication: Product used for unknown indication
     Dosage: 2MG ONCE A DAY
     Route: 065
  3. Congentin [Concomitant]
     Indication: Product used for unknown indication
     Dosage: 2MG TWICE A DAY
     Route: 065
  4. ABILIFY [Concomitant]
     Active Substance: ARIPIPRAZOLE
     Indication: Product used for unknown indication
     Dosage: 22MG AT BEDTIME
     Route: 065
  5. CLONAZEPAM [Concomitant]
     Active Substance: CLONAZEPAM
     Indication: Product used for unknown indication
     Dosage: 2MG AT BEDTIME
     Route: 065
  6. VITAMIN D [Concomitant]
     Active Substance: VITAMIN D NOS
     Indication: Product used for unknown indication
     Dosage: 2000 UNITS A DAY
     Route: 065
  7. EPIVAL [Concomitant]
     Active Substance: DIVALPROEX SODIUM
     Dosage: 1000MG AT BEDTIME
     Route: 065

REACTIONS (8)
  - Lymphocyte count decreased [Unknown]
  - Neutrophil count decreased [Unknown]
  - Blood pressure diastolic decreased [Unknown]
  - Gamma-glutamyltransferase decreased [Unknown]
  - Haematocrit decreased [Unknown]
  - Electrocardiogram ST segment depression [Unknown]
  - Red blood cell count decreased [Unknown]
  - Sinus tachycardia [Unknown]
